FAERS Safety Report 6072349-0 (Version None)
Quarter: 2009Q1

REPORT INFORMATION
  Report Type: 
  Country: None (occurrence: None)
  Receive Date: 20090210
  Receipt Date: 20090130
  Transmission Date: 20090719
  Serious: Yes (Other)
  Sender: FDA-Public Use
  Company Number: PHHY2009BR03641

PATIENT
  Sex: Female
  Weight: 54 kg

DRUGS (3)
  1. SLOW-K [Suspect]
     Indication: MUSCLE SPASMS
     Dosage: 1 TABLET/DAY
     Route: 048
     Dates: start: 20090121, end: 20090123
  2. TUBERSOL [Concomitant]
  3. UREADIN RX PS [Concomitant]
     Dosage: 3 TIMES A DAY

REACTIONS (7)
  - ABDOMINAL PAIN [None]
  - DERMATITIS ALLERGIC [None]
  - DIARRHOEA [None]
  - DYSENTERY [None]
  - HAEMATEMESIS [None]
  - PRURITUS [None]
  - VOMITING [None]
